FAERS Safety Report 7331562-2 (Version None)
Quarter: 2011Q1

REPORT INFORMATION
  Report Type: 
  Country: None (occurrence: None)
  Receive Date: 20110228
  Receipt Date: 20110228
  Transmission Date: 20110831
  Serious: Yes (Life-Threatening)
  Sender: FDA-Public Use
  Company Number: None

PATIENT
  Age: 80 Year
  Sex: Male
  Weight: 80.9 kg

DRUGS (1)
  1. ZYVOX [Suspect]
     Dates: start: 20110225, end: 20110225

REACTIONS (1)
  - VENTRICULAR TACHYCARDIA [None]
